FAERS Safety Report 5291109-1 (Version None)
Quarter: 2007Q2

REPORT INFORMATION
  Report Type: 
  Country: None (occurrence: None)
  Receive Date: 20070402
  Receipt Date: 20070316
  Transmission Date: 20071010
  Serious: Yes (Hospitalization)
  Sender: FDA-Public Use
  Company Number: 230397

PATIENT
  Age: 62 Year
  Sex: Female

DRUGS (3)
  1. HERCEPTIN [Suspect]
     Indication: BREAST CANCER METASTATIC
     Dosage: SEE IMAGE
     Dates: start: 20060411
  2. HERCEPTIN [Suspect]
     Indication: BREAST CANCER METASTATIC
     Dosage: SEE IMAGE
     Dates: start: 20060418
  3. VINFLUNINE (VINFLUNINE) [Suspect]
     Indication: BREAST CANCER METASTATIC
     Dosage: 320 MG/M2, Q3W, UNK
     Dates: start: 20060411

REACTIONS (1)
  - STOMATITIS [None]
